FAERS Safety Report 4585584-5 (Version None)
Quarter: 2005Q1

REPORT INFORMATION
  Report Type: 
  Country: None (occurrence: None)
  Receive Date: 20050217
  Receipt Date: 20050113
  Transmission Date: 20050727
  Serious: Yes (Hospitalization)
  Sender: FDA-Public Use
  Company Number: BR-MERCK-0501USA02743

PATIENT
  Age: 5 Year
  Sex: Female

DRUGS (4)
  1. DAUNORUBICIN [Concomitant]
     Indication: ACUTE LYMPHOCYTIC LEUKAEMIA
     Route: 065
  2. ELSPAR [Suspect]
     Indication: ACUTE LYMPHOCYTIC LEUKAEMIA
     Route: 042
  3. CORTICOSTEROIDS (UNSPECIFIED) [Concomitant]
     Indication: ACUTE LYMPHOCYTIC LEUKAEMIA
     Route: 065
  4. VINCRISTINE SULFATE [Concomitant]
     Indication: ACUTE LYMPHOCYTIC LEUKAEMIA
     Route: 065

REACTIONS (4)
  - HYPOVOLAEMIC SHOCK [None]
  - PANCREATIC PSEUDOCYST [None]
  - PANCREATITIS HAEMORRHAGIC [None]
  - SYSTEMIC INFLAMMATORY RESPONSE SYNDROME [None]
